FAERS Safety Report 9218200 (Version 1)
Quarter: 2013Q2

REPORT INFORMATION
  Report Type: Spontaneous
  Country: JP (occurrence: JP)
  Receive Date: 20130408
  Receipt Date: 20130408
  Transmission Date: 20140414
  Serious: Yes (Hospitalization)
  Sender: FDA-Public Use
  Company Number: JP-009507513-1304JPN002552

PATIENT
  Sex: 0

DRUGS (1)
  1. NU-LOTAN [Suspect]
     Indication: DIABETIC NEPHROPATHY
     Dosage: DOSAGED UNKNOWN DURING A DAY
     Route: 048

REACTIONS (2)
  - Pneumonia aspiration [Unknown]
  - Blood pressure systolic abnormal [Unknown]
